FAERS Safety Report 10553240 (Version 2)
Quarter: 2014Q4

REPORT INFORMATION
  Report Type: Spontaneous
  Country: NL (occurrence: NL)
  Receive Date: 20141030
  Receipt Date: 20141114
  Transmission Date: 20150529
  Serious: Yes (Hospitalization)
  Sender: FDA-Public Use
  Company Number: NL-ACCORD-026651

PATIENT
  Age: 54 Year
  Sex: Female

DRUGS (6)
  1. CLONAZEPAM. [Suspect]
     Active Substance: CLONAZEPAM
     Indication: EPILEPSY
     Dosage: 0,5 MG 2DD PER OS
     Route: 048
  2. CARBAMAZEPINE. [Interacting]
     Active Substance: CARBAMAZEPINE
     Indication: EPILEPSY
     Dosage: 200 MG 2DD PER OS
     Route: 048
  3. NO DRUG NAME [Concomitant]
     Dosage: 750 MG 2DD PER OS
     Route: 048
  4. VALPROIC ACID. [Interacting]
     Active Substance: VALPROIC ACID
     Indication: EPILEPSY
     Dosage: 1000 MG 1DD PER OS
     Route: 048
  5. FLUCLOXACILLIN [Suspect]
     Active Substance: FLUCLOXACILLIN
     Indication: INFECTION
     Dosage: 1200 MG CONTINUED INTRAVENOUS
     Route: 042
  6. RIFAMPICIN [Interacting]
     Active Substance: RIFAMPIN
     Indication: INFECTION
     Dosage: 450 MG 2DD INTRAVENOUS
     Route: 042

REACTIONS (3)
  - Drug interaction [Unknown]
  - Anticonvulsant drug level below therapeutic [Unknown]
  - Seizure [Recovered/Resolved]
